FAERS Safety Report 7402620 (Version 2)
Quarter: 2013Q1

REPORT INFORMATION
  Report Type: Spontaneous
  Country: US (occurrence: US)
  Receive Date: 20100528
  Receipt Date: 20130218
  Transmission Date: 20140127
  Serious: Yes (Hospitalization)
  Sender: FDA-Public Use
  Company Number: US-BAYER-201023392NA

PATIENT
  Age: 29 Year
  Sex: Female
  Weight: 63 kg

DRUGS (13)
  1. YASMIN [Suspect]
     Indication: CONTRACEPTION
     Dosage: UNK UNK, QD
     Route: 048
     Dates: start: 1998, end: 2009
  2. YASMIN [Suspect]
     Indication: CONTRACEPTION
     Dosage: UNK
     Dates: start: 2003, end: 2009
  3. OCELLA [Suspect]
     Indication: CONTRACEPTION
     Dosage: UNK
     Dates: start: 1998, end: 2009
  4. OCELLA [Suspect]
     Indication: CONTRACEPTION
     Dosage: UNK
     Dates: start: 2003, end: 2009
  5. FUROSEMIDE [Concomitant]
     Dosage: 10 MG, BID
     Route: 048
     Dates: start: 2003, end: 2009
  6. TRIMETHOBENZAMIDE [Concomitant]
     Indication: VOMITING
     Dosage: 250-300 MG, EVERY 6 HOURS
     Route: 048
  7. HYDROCODONE/GUAIFENESIN [Concomitant]
     Indication: COUGH
     Dosage: 3.5/300 MG, TAKE 1-2 TSP EVERY 6 HOURS AS NEEDED
     Route: 048
  8. AMOXICILLIN [Concomitant]
     Dosage: 875 MG, UNK
     Route: 048
  9. PHENAZOPYRIDINE [Concomitant]
     Dosage: 100-200 MG, EVERY 8 HOURS AS NEEDED
     Route: 048
  10. PROMETHEGAN [Concomitant]
     Dosage: 12.5-25 MG, EVERY 6 HOURS AS NEEDED
     Route: 054
  11. NEXIUM [Concomitant]
  12. TIGAN [Concomitant]
  13. LOMOTIL [DIPHENOXYLATE HYDROCHLORIDE] [Concomitant]

REACTIONS (2)
  - Gallbladder disorder [None]
  - Cholecystitis chronic [None]
